FAERS Safety Report 19893833 (Version 1)
Quarter: 2021Q3

REPORT INFORMATION
  Report Type: Report from Study
  Country: PA (occurrence: PA)
  Receive Date: 20210928
  Receipt Date: 20210928
  Transmission Date: 20211014
  Serious: Yes (Other)
  Sender: FDA-Public Use
  Company Number: NVSC2021PA195458

PATIENT
  Sex: Female

DRUGS (2)
  1. KISQALI [Suspect]
     Active Substance: RIBOCICLIB
     Indication: BREAST CANCER METASTATIC
     Dosage: 600 MG, QD (3 TABLETS)
     Route: 048
     Dates: start: 202106
  2. ANASTROZOLE. [Suspect]
     Active Substance: ANASTROZOLE
     Indication: PRODUCT USED FOR UNKNOWN INDICATION
     Dosage: UNK
     Route: 065

REACTIONS (17)
  - Anal haemorrhage [Unknown]
  - Haemorrhoids [Unknown]
  - Asthenia [Unknown]
  - Dizziness [Unknown]
  - Chest discomfort [Unknown]
  - Malaise [Unknown]
  - Nausea [Unknown]
  - Constipation [Unknown]
  - Pruritus [Unknown]
  - Haematoma [Unknown]
  - Hypersensitivity [Unknown]
  - Aphonia [Unknown]
  - Amnesia [Unknown]
  - Metastases to bone [Unknown]
  - Axillary mass [Unknown]
  - Arthralgia [Unknown]
  - Cough [Unknown]
